FAERS Safety Report 10101266 (Version 1)
Quarter: 2014Q2

REPORT INFORMATION
  Report Type: Spontaneous
  Country: US (occurrence: None)
  Receive Date: 20140423
  Receipt Date: 20140423
  Transmission Date: 20141212
  Serious: No
  Sender: FDA-Public Use
  Company Number: None

PATIENT
  Age: 41 Year
  Sex: Female
  Weight: 81.65 kg

DRUGS (1)
  1. PREDNISONE [Suspect]
     Indication: RASH
     Dosage: 2 PILLS A DAY TWICE DAILY TAKEN BY MOUTH
     Route: 048
     Dates: start: 20140411, end: 20140419

REACTIONS (9)
  - Anxiety [None]
  - Aggression [None]
  - Insomnia [None]
  - Palpitations [None]
  - Chest pain [None]
  - Dizziness [None]
  - Pain [None]
  - Multiple allergies [None]
  - Condition aggravated [None]
